FAERS Safety Report 7179349-8 (Version None)
Quarter: 2010Q4

REPORT INFORMATION
  Report Type: 
  Country: None (occurrence: None)
  Receive Date: 20101221
  Receipt Date: 20101208
  Transmission Date: 20110411
  Serious: Yes (Other)
  Sender: FDA-Public Use
  Company Number: PHHY2010MX36778

PATIENT
  Sex: Female

DRUGS (1)
  1. RASILEZ [Suspect]
     Indication: HYPERTENSION
     Dosage: 300 MG (1 TABLET) DAILY
     Route: 048
     Dates: start: 20100111

REACTIONS (2)
  - BLOOD PRESSURE DECREASED [None]
  - UTERINE PAIN [None]
